FAERS Safety Report 13667592 (Version 2)
Quarter: 2017Q2

REPORT INFORMATION
  Report Type: Spontaneous
  Country: CN (occurrence: CN)
  Receive Date: 20170620
  Receipt Date: 20170626
  Transmission Date: 20170830
  Serious: No
  Sender: FDA-Public Use
  Company Number: CN-ROCHE-1941136

PATIENT
  Sex: Female

DRUGS (2)
  1. PEGASYS [Suspect]
     Active Substance: PEGINTERFERON ALFA-2A
     Indication: HEPATITIS B
     Route: 065
  2. TENOFOVIR [Concomitant]
     Active Substance: TENOFOVIR
     Indication: HEPATITIS B

REACTIONS (2)
  - Pregnancy [Unknown]
  - No adverse event [Unknown]
